FAERS Safety Report 13329987 (Version 2)
Quarter: 2017Q1

REPORT INFORMATION
  Report Type: Spontaneous
  Country: US (occurrence: US)
  Receive Date: 20170313
  Receipt Date: 20170320
  Transmission Date: 20170428
  Serious: No
  Sender: FDA-Public Use
  Company Number: US-PFIZER INC-2017105893

PATIENT
  Age: 63 Year
  Sex: Female
  Weight: 76 kg

DRUGS (5)
  1. GENOTROPIN MQ [Suspect]
     Active Substance: SOMATROPIN
     Dosage: 0.4 MG, UNK (MINQUICKS,7 DAYS PER WEEK)
     Dates: start: 201302
  2. CYTOMEL [Concomitant]
     Active Substance: LIOTHYRONINE SODIUM
     Dosage: 5 UG, UNK
  3. GENOTROPIN MQ [Suspect]
     Active Substance: SOMATROPIN
     Dosage: 0.6 MG, UNK (MINQUICKS,7 DAYS PER WEEK)
  4. LEVOTHYROXINE. [Concomitant]
     Active Substance: LEVOTHYROXINE
     Dosage: 125 UG, UNK
  5. GENOTROPIN MQ [Suspect]
     Active Substance: SOMATROPIN
     Dosage: 0.5 MG, UNK (MINQUICKS)

REACTIONS (4)
  - Decreased activity [Unknown]
  - Asthenia [Unknown]
  - Dizziness [Unknown]
  - Stress [Unknown]
